FAERS Safety Report 21762455 (Version 1)
Quarter: 2022Q4

REPORT INFORMATION
  Report Type: Spontaneous
  Country: PL (occurrence: PL)
  Receive Date: 20221221
  Receipt Date: 20221221
  Transmission Date: 20230113
  Serious: Yes (Death, Hospitalization, Other)
  Sender: FDA-Public Use
  Company Number: PL-UNITED THERAPEUTICS-UNT-2022-031184

PATIENT

DRUGS (6)
  1. REMODULIN [Suspect]
     Active Substance: TREPROSTINIL
     Indication: Pulmonary arterial hypertension
     Dosage: UNK
     Route: 058
  2. REMODULIN [Suspect]
     Active Substance: TREPROSTINIL
     Dosage: 0.136 ?G/KG, CONTINUING [AT AN INFUSION RATE OF 42 ?L/H]
     Route: 058
  3. SILDENAFIL [Concomitant]
     Active Substance: SILDENAFIL
     Indication: Pulmonary arterial hypertension
     Dosage: UNK
     Route: 065
  4. SILDENAFIL [Concomitant]
     Active Substance: SILDENAFIL
     Dosage: 20 MG, TID
     Route: 065
  5. BOSENTAN [Concomitant]
     Active Substance: BOSENTAN
     Indication: Pulmonary arterial hypertension
     Dosage: UNK
     Route: 065
  6. BOSENTAN [Concomitant]
     Active Substance: BOSENTAN
     Dosage: 125 MG, BID
     Route: 065

REACTIONS (17)
  - Hypotension [Fatal]
  - Multiple organ dysfunction syndrome [Fatal]
  - Systemic inflammatory response syndrome [Unknown]
  - Cardiac failure [Unknown]
  - Ascites [Unknown]
  - Hepatomegaly [Unknown]
  - Procedural haemorrhage [Unknown]
  - Post procedural haemorrhage [Unknown]
  - Haemorrhagic diathesis [Unknown]
  - Pericardial effusion [Unknown]
  - Hepatic necrosis [Unknown]
  - Cachexia [Unknown]
  - Pericarditis [Unknown]
  - Depression [Unknown]
  - Cyanosis [Unknown]
  - Heart valve incompetence [Unknown]
  - Oedema peripheral [Unknown]

NARRATIVE: CASE EVENT DATE: 20210101
